FAERS Safety Report 4731452-5 (Version None)
Quarter: 2005Q3

REPORT INFORMATION
  Report Type: 
  Country: None (occurrence: None)
  Receive Date: 20050719
  Receipt Date: 20040603
  Transmission Date: 20060218
  Serious: Yes (Hospitalization)
  Sender: FDA-Public Use
  Company Number: 199238

PATIENT
  Sex: Female
  Weight: 88.4514 kg

DRUGS (4)
  1. AVONEX [Suspect]
     Indication: MULTIPLE SCLEROSIS
     Dosage: 30 UG;QW;IM
     Route: 030
     Dates: start: 20000301, end: 20031201
  2. AVONEX [Suspect]
     Indication: MULTIPLE SCLEROSIS
     Dosage: 30 UG;QW;IM
     Route: 030
     Dates: start: 20031201
  3. NEURONTIN [Concomitant]
  4. CARBATROL [Concomitant]

REACTIONS (15)
  - CHEST DISCOMFORT [None]
  - CONFUSIONAL STATE [None]
  - CONSTIPATION [None]
  - COUGH [None]
  - CYSTITIS [None]
  - DEPRESSION [None]
  - FATIGUE [None]
  - LIMB INJURY [None]
  - MEMORY IMPAIRMENT [None]
  - MENISCUS LESION [None]
  - MULTIPLE SCLEROSIS RELAPSE [None]
  - NUCLEAR MAGNETIC RESONANCE IMAGING BRAIN ABNORMAL [None]
  - TREMOR [None]
  - VARICOSE VEIN [None]
  - VISION BLURRED [None]
